FAERS Safety Report 5354661-3 (Version None)
Quarter: 2007Q2

REPORT INFORMATION
  Report Type: 
  Country: None (occurrence: None)
  Receive Date: 20070612
  Receipt Date: 20070531
  Transmission Date: 20071010
  Serious: No
  Sender: FDA-Public Use
  Company Number: US-ASTRAZENECA-2006UW06097

PATIENT
  Age: 565 Month
  Sex: Female
  Weight: 100 kg

DRUGS (9)
  1. SEROQUEL [Suspect]
     Indication: DEPRESSION
     Dosage: 2-25 MG
     Route: 048
     Dates: start: 20020901, end: 20060501
  2. SEROQUEL [Suspect]
     Indication: SLEEP DISORDER
     Dosage: 2-25 MG
     Route: 048
     Dates: start: 20020901, end: 20060501
  3. SEROQUEL [Suspect]
     Dosage: 2 TO 4 MG
     Route: 048
  4. SEROQUEL [Suspect]
     Dosage: 2 TO 4 MG
     Route: 048
  5. RISPERDAL [Concomitant]
  6. ZOLOFT [Concomitant]
  7. THIZINE [Concomitant]
  8. PAXIL [Concomitant]
  9. CYMBALTA [Concomitant]

REACTIONS (1)
  - DIABETES MELLITUS [None]
